FAERS Safety Report 18593069 (Version 1)
Quarter: 2020Q4

REPORT INFORMATION
  Report Type: Spontaneous
  Country: US (occurrence: US)
  Receive Date: 20201209
  Receipt Date: 20201209
  Transmission Date: 20210114
  Serious: No
  Sender: FDA-Public Use
  Company Number: US-BION-008509

PATIENT
  Age: 50 Year
  Sex: Female
  Weight: 165.11 kg

DRUGS (21)
  1. ESTRADIOL. [Concomitant]
     Active Substance: ESTRADIOL
  2. LEVOTHYROXINE. [Concomitant]
     Active Substance: LEVOTHYROXINE
  3. LISINOPRIL. [Concomitant]
     Active Substance: LISINOPRIL
     Dates: end: 20191126
  4. MIFEPRISTONE [Suspect]
     Active Substance: MIFEPRISTONE
     Indication: CUSHING^S SYNDROME
     Route: 048
     Dates: start: 20191114, end: 20191213
  5. ELETRIPTAN/ELETRIPTAN HYDROBROMIDE [Concomitant]
     Active Substance: ELETRIPTAN\ELETRIPTAN HYDROBROMIDE
     Dates: end: 20191127
  6. ZOFRAN [Concomitant]
     Active Substance: ONDANSETRON HYDROCHLORIDE
  7. TOPIRAMATE. [Concomitant]
     Active Substance: TOPIRAMATE
  8. BIONPHARMA^S VITAMIN D UNSPECIFIED [Suspect]
     Active Substance: ERGOCALCIFEROL
     Indication: PRODUCT USED FOR UNKNOWN INDICATION
  9. CYCLOBENZAPRINE. [Concomitant]
     Active Substance: CYCLOBENZAPRINE
  10. METFORMIN [Concomitant]
     Active Substance: METFORMIN HYDROCHLORIDE
  11. VENLAFAXINE/VENLAFAXINE HYDROCHLORIDE [Concomitant]
     Active Substance: VENLAFAXINE HYDROCHLORIDE
  12. MIFEPRISTONE [Suspect]
     Active Substance: MIFEPRISTONE
     Indication: CUSHING^S SYNDROME
     Route: 048
     Dates: start: 20191214
  13. SUMATRIPTAN. [Concomitant]
     Active Substance: SUMATRIPTAN
     Dates: start: 20191127
  14. DEXILANT [Concomitant]
     Active Substance: DEXLANSOPRAZOLE
  15. HYDROXYZINE [Concomitant]
     Active Substance: HYDROXYZINE HYDROCHLORIDE
  16. ATORVASTATIN [Concomitant]
     Active Substance: ATORVASTATIN
  17. BYDUREON [Concomitant]
     Active Substance: EXENATIDE
  18. PENNSAID [Concomitant]
     Active Substance: DICLOFENAC SODIUM
  19. VASCEPA [Concomitant]
     Active Substance: ICOSAPENT ETHYL
  20. NORCO [Concomitant]
     Active Substance: ACETAMINOPHEN\HYDROCODONE BITARTRATE
  21. LISINOPRIL. [Concomitant]
     Active Substance: LISINOPRIL
     Dates: start: 20191127

REACTIONS (20)
  - Blood glucose increased [Unknown]
  - Tremor [Unknown]
  - Blood thyroid stimulating hormone decreased [Unknown]
  - Thyroxine free increased [Unknown]
  - Back pain [Unknown]
  - Arthralgia [Unknown]
  - Vomiting [Unknown]
  - Migraine [Recovered/Resolved]
  - Irritability [Unknown]
  - Insomnia [Unknown]
  - Dry mouth [Unknown]
  - Somnolence [Unknown]
  - Micturition urgency [Recovered/Resolved]
  - Fatigue [Unknown]
  - Neck pain [Unknown]
  - Weight increased [Unknown]
  - Increased appetite [Recovered/Resolved]
  - Nausea [Unknown]
  - Blood pressure increased [Unknown]
  - Headache [Recovered/Resolved]

NARRATIVE: CASE EVENT DATE: 2019
